FAERS Safety Report 15140365 (Version 5)
Quarter: 2018Q3

REPORT INFORMATION
  Report Type: Spontaneous
  Country: IT (occurrence: IT)
  Receive Date: 20180713
  Receipt Date: 20180918
  Transmission Date: 20181010
  Serious: Yes (Congenital Anomaly, Other)
  Sender: FDA-Public Use
  Company Number: PHHY2018IT038498

PATIENT

DRUGS (5)
  1. PREGABALIN. [Suspect]
     Active Substance: PREGABALIN
     Indication: EPILEPSY
  2. GABAPENTIN. [Suspect]
     Active Substance: GABAPENTIN
     Indication: FOETAL EXPOSURE DURING PREGNANCY
     Dosage: UNK
     Route: 064
  3. PREGABALIN. [Suspect]
     Active Substance: PREGABALIN
     Indication: FOETAL EXPOSURE DURING PREGNANCY
     Dosage: UNK
     Route: 064
  4. GABAPENTIN. [Suspect]
     Active Substance: GABAPENTIN
     Indication: EPILEPSY
     Route: 064
  5. GABAPENTIN. [Suspect]
     Active Substance: GABAPENTIN
     Route: 064

REACTIONS (6)
  - Foetal exposure during pregnancy [Unknown]
  - Congenital anomaly [Unknown]
  - Small for dates baby [Unknown]
  - Low birth weight baby [Unknown]
  - Ventricular septal defect [Unknown]
  - Exposure during pregnancy [Unknown]
